FAERS Safety Report 21149034 (Version 1)
Quarter: 2022Q3

REPORT INFORMATION
  Report Type: Spontaneous
  Country: US (occurrence: None)
  Receive Date: 20220729
  Receipt Date: 20220729
  Transmission Date: 20221026
  Serious: Yes (Life-Threatening, Hospitalization, Disabling, Other)
  Sender: FDA-Public Use
  Company Number: None

PATIENT
  Age: 67 Year
  Sex: Female
  Weight: 54.43 kg

DRUGS (5)
  1. SEROQUEL [Suspect]
     Active Substance: QUETIAPINE FUMARATE
     Dates: start: 20180510, end: 20181002
  2. LOSARTAN POTSASSIUM [Concomitant]
  3. ADVAIR HFA [Concomitant]
     Active Substance: FLUTICASONE PROPIONATE\SALMETEROL XINAFOATE
  4. VITAMINS [Concomitant]
     Active Substance: VITAMINS
  5. LOPERAMIDE HYDROCHLORIDE [Concomitant]
     Active Substance: LOPERAMIDE HYDROCHLORIDE

REACTIONS (14)
  - Hypersensitivity [None]
  - Off label use [None]
  - Cognitive disorder [None]
  - Anxiety [None]
  - Agitation [None]
  - Anger [None]
  - Irritability [None]
  - Emotional disorder [None]
  - Personal relationship issue [None]
  - Simple partial seizures [None]
  - Focal dyscognitive seizures [None]
  - Legal problem [None]
  - Therapy cessation [None]
  - Imprisonment [None]

NARRATIVE: CASE EVENT DATE: 20180511
